FAERS Safety Report 21069393 (Version 1)
Quarter: 2022Q3

REPORT INFORMATION
  Report Type: Spontaneous
  Country: US (occurrence: US)
  Receive Date: 20220712
  Receipt Date: 20220712
  Transmission Date: 20221027
  Serious: No
  Sender: FDA-Public Use
  Company Number: US-GILEAD-2022-0588185

PATIENT
  Sex: Female

DRUGS (5)
  1. EPCLUSA [Suspect]
     Active Substance: SOFOSBUVIR\VELPATASVIR
     Indication: Chronic hepatitis C
     Dosage: 1 DOSAGE FORM, QD
     Route: 048
  2. LYRICA [Concomitant]
     Active Substance: PREGABALIN
  3. BENAZEPRIL [Concomitant]
     Active Substance: BENAZEPRIL HYDROCHLORIDE
  4. CYMBALTA [Concomitant]
     Active Substance: DULOXETINE HYDROCHLORIDE
  5. HYDROCODONE [Concomitant]
     Active Substance: HYDROCODONE

REACTIONS (4)
  - Insomnia [Recovering/Resolving]
  - Nausea [Unknown]
  - Fatigue [Unknown]
  - Headache [Unknown]
